FAERS Safety Report 6852335-0 (Version None)
Quarter: 2010Q3

REPORT INFORMATION
  Report Type: 
  Country: None (occurrence: None)
  Receive Date: 20100717
  Receipt Date: 20071121
  Transmission Date: 20110219
  Serious: No
  Sender: FDA-Public Use
  Company Number: US-PFIZER INC-2007096890

PATIENT
  Sex: Male
  Weight: 75 kg

DRUGS (5)
  1. CHANTIX [Suspect]
     Indication: SMOKING CESSATION THERAPY
     Dates: start: 20071021
  2. AZOPT [Concomitant]
     Indication: GLAUCOMA
  3. ALPHAGAN [Concomitant]
     Indication: GLAUCOMA
  4. TAMSULOSIN HYDROCHLORIDE [Concomitant]
     Indication: PROSTATOMEGALY
  5. DITROPAN [Concomitant]
     Indication: PROSTATOMEGALY

REACTIONS (1)
  - LIMB INJURY [None]
